FAERS Safety Report 5342594-8 (Version None)
Quarter: 2007Q2

REPORT INFORMATION
  Report Type: 
  Country: None (occurrence: None)
  Receive Date: 20070601
  Receipt Date: 20070212
  Transmission Date: 20071010
  Serious: No
  Sender: FDA-Public Use
  Company Number: A0639196A

PATIENT
  Age: 37 Year
  Sex: Female

DRUGS (5)
  1. AUGMENTIN XR [Suspect]
     Indication: EAR INFECTION
     Dosage: 1000MG TWICE PER DAY
     Route: 048
     Dates: start: 20070207, end: 20070211
  2. CELEXA [Concomitant]
  3. CALCIUM CHLORIDE [Concomitant]
  4. ASCORBIC ACID [Concomitant]
  5. FOLIC ACID [Concomitant]

REACTIONS (3)
  - ERYTHEMA [None]
  - PRURITUS [None]
  - URTICARIA [None]
